FAERS Safety Report 4903478-X (Version None)
Quarter: 2006Q1

REPORT INFORMATION
  Report Type: 
  Country: None (occurrence: None)
  Receive Date: 20060203
  Receipt Date: 20060124
  Transmission Date: 20060701
  Serious: Yes (Death)
  Sender: FDA-Public Use
  Company Number: MEDI-0004081

PATIENT
  Age: 17 Month
  Sex: Male

DRUGS (2)
  1. SYNAGIS (PALIVIZUMAB) [Suspect]
     Indication: ANTIVIRAL PROPHYLAXIS
     Dosage: 1 IN 30 D, INTRAMUSCULAR
     Route: 030
     Dates: start: 20051101, end: 20051206
  2. SYNAGIS (PALIVIZUMAB) [Suspect]
     Indication: ANTIVIRAL PROPHYLAXIS
     Dosage: 1 IN 30 D, INTRAMUSCULAR
     Route: 030
     Dates: start: 20051101

REACTIONS (1)
  - PNEUMONIA ASPIRATION [None]
